FAERS Safety Report 7988709-4 (Version None)
Quarter: 2011Q4

REPORT INFORMATION
  Report Type: 
  Country: None (occurrence: None)
  Receive Date: 20111218
  Receipt Date: 20111207
  Transmission Date: 20120403
  Serious: No
  Sender: FDA-Public Use
  Company Number: DE-ELI_LILLY_AND_COMPANY-DE201112001989

PATIENT
  Sex: Female

DRUGS (10)
  1. TORSEMIDE [Concomitant]
  2. ACTRAPID                           /00030501/ [Concomitant]
  3. CYMBALTA [Suspect]
     Indication: DIABETIC NEUROPATHY
     Dosage: 60 MG, QD
     Route: 048
     Dates: end: 20110920
  4. LERCANIDIPINE [Concomitant]
  5. SPASMEX [Concomitant]
  6. NEBIVOLOL HCL [Concomitant]
  7. SIMVASTATIN [Concomitant]
  8. OMEPRAZOLE [Concomitant]
  9. ENALAPRIL MALEATE [Concomitant]
  10. ASPIRIN [Concomitant]

REACTIONS (1)
  - GAMMA-GLUTAMYLTRANSFERASE INCREASED [None]
